FAERS Safety Report 13076215 (Version 2)
Quarter: 2017Q1

REPORT INFORMATION
  Report Type: Spontaneous
  Country: US (occurrence: US)
  Receive Date: 20161230
  Receipt Date: 20170224
  Transmission Date: 20170428
  Serious: Yes (Other)
  Sender: FDA-Public Use
  Company Number: US-SAOL THERAPEUTICS-2016SAO01302

PATIENT
  Sex: Female
  Weight: 73.16 kg

DRUGS (9)
  1. BACLOFEN. [Suspect]
     Active Substance: BACLOFEN
     Indication: SPINAL PAIN
     Dosage: 63.44 ?G, \DAY
     Route: 037
  2. DILAUDID [Suspect]
     Active Substance: HYDROMORPHONE HYDROCHLORIDE
     Dosage: 0.961 MG, \DAY
     Dates: start: 201612
  3. CLONIDINE. [Suspect]
     Active Substance: CLONIDINE
     Dosage: 200 UNK, \DAY
     Route: 037
  4. DILAUDID [Suspect]
     Active Substance: HYDROMORPHONE HYDROCHLORIDE
     Dosage: 20 ?G, \DAY
     Route: 037
  5. PERCOCET [Concomitant]
     Active Substance: ACETAMINOPHEN\OXYCODONE HYDROCHLORIDE
  6. CLONIDINE. [Suspect]
     Active Substance: CLONIDINE
     Dosage: 63.44 ?G, \DAY
  7. BACLOFEN. [Suspect]
     Active Substance: BACLOFEN
     Dosage: 200 UNK, UNK
     Route: 037
     Dates: start: 2011
  8. BACLOFEN. [Suspect]
     Active Substance: BACLOFEN
     Indication: PAIN
  9. DILAUDID [Suspect]
     Active Substance: HYDROMORPHONE HYDROCHLORIDE
     Dosage: 6.3 ?G, \DAY

REACTIONS (5)
  - Systemic lupus erythematosus [Not Recovered/Not Resolved]
  - Device occlusion [Unknown]
  - Product deposit [Unknown]
  - Pain [Recovering/Resolving]
  - Off label use [Unknown]
